FAERS Safety Report 20482412 (Version 1)
Quarter: 2022Q1

REPORT INFORMATION
  Report Type: Spontaneous
  Country: IN (occurrence: IN)
  Receive Date: 20220217
  Receipt Date: 20220217
  Transmission Date: 20220423
  Serious: Yes (Other)
  Sender: FDA-Public Use
  Company Number: IN-WOCKHARDT BIO AG-2022WBA000014

PATIENT
  Age: 12 Year
  Sex: Male

DRUGS (2)
  1. IMATINIB [Suspect]
     Active Substance: IMATINIB
     Indication: Chronic myeloid leukaemia
     Dosage: 340 MILLIGRAM/SQ. METER, QD
     Route: 065
  2. HYDROXYUREA [Concomitant]
     Active Substance: HYDROXYUREA
     Indication: Chronic myeloid leukaemia
     Dosage: 50 MILLIGRAM/KILOGRAM, QD
     Route: 065

REACTIONS (6)
  - Retroperitoneal fibrosis [Recovering/Resolving]
  - Hydronephrosis [Recovering/Resolving]
  - Toxicity to various agents [Unknown]
  - Vitamin D deficiency [Recovering/Resolving]
  - Skin hypopigmentation [Recovering/Resolving]
  - Myalgia [Recovering/Resolving]
